FAERS Safety Report 22976453 (Version 2)
Quarter: 2024Q2

REPORT INFORMATION
  Report Type: Report from Study
  Country: US (occurrence: US)
  Receive Date: 20230925
  Receipt Date: 20240405
  Transmission Date: 20240715
  Serious: Yes (Hospitalization, Other)
  Sender: FDA-Public Use
  Company Number: US-JAZZ PHARMACEUTICALS-2023-US-019800

PATIENT
  Sex: Male
  Weight: 16.1 kg

DRUGS (14)
  1. EPIDIOLEX [Suspect]
     Active Substance: CANNABIDIOL
     Indication: Product used for unknown indication
     Dosage: 1.6 MILLILITER, BID
     Route: 048
  2. EPIDIOLEX [Suspect]
     Active Substance: CANNABIDIOL
     Dosage: 1.6 MILLILITER, BID
     Route: 048
     Dates: start: 202309
  3. VALTOCO [Concomitant]
     Active Substance: DIAZEPAM
     Indication: Product used for unknown indication
  4. FOCALIN [Concomitant]
     Active Substance: DEXMETHYLPHENIDATE HYDROCHLORIDE
     Indication: Product used for unknown indication
     Dosage: UNK
  5. FOCALIN [Concomitant]
     Active Substance: DEXMETHYLPHENIDATE HYDROCHLORIDE
     Dosage: 10 MILLIGRAM
  6. FOCALIN [Concomitant]
     Active Substance: DEXMETHYLPHENIDATE HYDROCHLORIDE
     Dosage: UNK
  7. VIMPAT [Concomitant]
     Active Substance: LACOSAMIDE
     Indication: Product used for unknown indication
     Dosage: UNK
  8. VIMPAT [Concomitant]
     Active Substance: LACOSAMIDE
     Dosage: 150 MILLIGRAM
  9. VIMPAT [Concomitant]
     Active Substance: LACOSAMIDE
     Dosage: UNK
  10. BRIVIACT [Concomitant]
     Active Substance: BRIVARACETAM
     Indication: Product used for unknown indication
     Dosage: UNK
  11. BRIVIACT [Concomitant]
     Active Substance: BRIVARACETAM
     Dosage: 75 MILLIGRAM
  12. BRIVIACT [Concomitant]
     Active Substance: BRIVARACETAM
     Dosage: UNK
  13. ZONEGRAN [Concomitant]
     Active Substance: ZONISAMIDE
     Indication: Product used for unknown indication
  14. VYVANSE [Concomitant]
     Active Substance: LISDEXAMFETAMINE DIMESYLATE

REACTIONS (2)
  - Cerebral disorder [Unknown]
  - Seizure [Unknown]

NARRATIVE: CASE EVENT DATE: 20240101
